FAERS Safety Report 9924344 (Version 2)
Quarter: 2014Q2

REPORT INFORMATION
  Report Type: Spontaneous
  Country: US (occurrence: US)
  Receive Date: 20140226
  Receipt Date: 20140516
  Transmission Date: 20141212
  Serious: Yes (Hospitalization, Other)
  Sender: FDA-Public Use
  Company Number: US-ROCHE-1353555

PATIENT
  Sex: Female

DRUGS (5)
  1. NUTROPIN [Suspect]
     Indication: GROWTH HORMONE DEFICIENCY
     Dosage: ^EVERY NIGHT^
     Route: 065
     Dates: start: 2008
  2. VASOPRESSIN [Concomitant]
  3. TESTOSTERONE [Concomitant]
  4. OXYTOCIN [Concomitant]
  5. PROGESTERONE [Concomitant]

REACTIONS (8)
  - Myxoedema coma [Unknown]
  - Respiratory disorder [Unknown]
  - Hepatic failure [Unknown]
  - Intraductal proliferative breast lesion [Unknown]
  - Hypothyroidism [Unknown]
  - Asthenia [Unknown]
  - Posture abnormal [Unknown]
  - Malaise [Unknown]
